FAERS Safety Report 25004519 (Version 1)
Quarter: 2025Q1

REPORT INFORMATION
  Report Type: Spontaneous
  Country: DE (occurrence: DE)
  Receive Date: 20250224
  Receipt Date: 20250224
  Transmission Date: 20250408
  Serious: Yes (Hospitalization, Other)
  Sender: SANDOZ
  Company Number: DE-Merck Healthcare KGaA-2024057626

PATIENT
  Age: 10 Year
  Sex: Male

DRUGS (13)
  1. PREDNISOLONE [Suspect]
     Active Substance: PREDNISOLONE
     Indication: Product used for unknown indication
     Route: 065
  2. RAPAMUNE [Suspect]
     Active Substance: SIROLIMUS
     Indication: Product used for unknown indication
     Route: 065
  3. SAIZEN [Suspect]
     Active Substance: SOMATROPIN
     Dosage: DOSE WAS CHANGED TO FULL DOSEDEVICE SERIAL NUMBER: 80903490994
     Route: 058
     Dates: start: 20241021
  4. SAIZEN [Suspect]
     Active Substance: SOMATROPIN
     Indication: Growth disorder
     Route: 058
     Dates: start: 201605, end: 20171212
  5. SAIZEN [Suspect]
     Active Substance: SOMATROPIN
     Route: 058
     Dates: start: 20240710
  6. SANDIMMUNE [Suspect]
     Active Substance: CYCLOSPORINE
     Indication: Product used for unknown indication
     Route: 065
  7. AMLODIPINE [Concomitant]
     Active Substance: AMLODIPINE BESYLATE
     Indication: Product used for unknown indication
     Route: 065
  8. FERROUS GLYCINE SULFATE [Concomitant]
     Active Substance: FERROUS GLYCINE SULFATE
     Indication: Product used for unknown indication
     Route: 065
  9. MAGNESIUM [Concomitant]
     Active Substance: MAGNESIUM
     Indication: Product used for unknown indication
     Route: 065
  10. SODIUM BICARBONATE [Concomitant]
     Active Substance: SODIUM BICARBONATE
     Indication: Product used for unknown indication
     Route: 065
  11. PRAVASTATIN [Concomitant]
     Active Substance: PRAVASTATIN
     Indication: Product used for unknown indication
     Route: 065
  12. VALSARTAN [Concomitant]
     Active Substance: VALSARTAN
     Indication: Product used for unknown indication
     Route: 065
  13. VITAMIN D [Concomitant]
     Active Substance: VITAMIN D NOS
     Indication: Product used for unknown indication
     Route: 065

REACTIONS (10)
  - Sepsis [Recovered/Resolved]
  - Gastrointestinal disorder [Recovered/Resolved]
  - Biopsy kidney [Recovered/Resolved]
  - Immunosuppression [Recovered/Resolved]
  - Photophobia [Unknown]
  - Aphthous ulcer [Recovered/Resolved]
  - Nasopharyngitis [Recovered/Resolved]
  - Infection [Recovered/Resolved]
  - Headache [Not Recovered/Not Resolved]
  - Therapy interrupted [Recovered/Resolved]

NARRATIVE: CASE EVENT DATE: 20240121
